FAERS Safety Report 5114592-0 (Version None)
Quarter: 2006Q3

REPORT INFORMATION
  Report Type: 
  Country: None (occurrence: None)
  Receive Date: 20060926
  Receipt Date: 20060914
  Transmission Date: 20061208
  Serious: Yes (Death, Other)
  Sender: FDA-Public Use
  Company Number: US-JNJFOC-20050704842

PATIENT
  Sex: Male

DRUGS (2)
  1. REMICADE [Suspect]
     Indication: RHEUMATOID ARTHRITIS
     Route: 042
     Dates: start: 20021028, end: 20030523
  2. PREDNISONE TAB [Concomitant]

REACTIONS (6)
  - ARTERIOSCLEROSIS [None]
  - COLON CANCER [None]
  - DEATH [None]
  - GASTROINTESTINAL HAEMORRHAGE [None]
  - LUNG DISORDER [None]
  - METASTASIS [None]
